FAERS Safety Report 12413879 (Version 2)
Quarter: 2016Q2

REPORT INFORMATION
  Report Type: Spontaneous
  Country: KR (occurrence: KR)
  Receive Date: 20160527
  Receipt Date: 20160601
  Transmission Date: 20160815
  Serious: Yes (Other)
  Sender: FDA-Public Use
  Company Number: KR-009507513-1506KOR000095

PATIENT
  Age: 56 Year
  Sex: Male

DRUGS (24)
  1. NASONEX [Suspect]
     Active Substance: MOMETASONE FUROATE
     Indication: APHTHOUS ULCER
     Dosage: 2 SPRAYS EACH NOSTRIL ONCE A DAY, EVERY DAY FOR TWO WEEKS
     Route: 045
     Dates: start: 20150304, end: 20150317
  2. NASONEX [Suspect]
     Active Substance: MOMETASONE FUROATE
     Indication: PRODUCTIVE COUGH
  3. DEXIBUPROFEN [Concomitant]
     Active Substance: DEXIBUPROFEN
     Indication: APHTHOUS ULCER
  4. ALMAGEL (ALMAGATE) [Concomitant]
     Indication: NASAL DRYNESS
  5. ALGENA [Concomitant]
     Indication: ANTACID THERAPY
     Dosage: UNK, TWICE
     Route: 048
     Dates: start: 201503
  6. NASONEX [Suspect]
     Active Substance: MOMETASONE FUROATE
     Indication: NASAL DRYNESS
     Dosage: UNK, OCCASIONALLY IN THE THIRD AND FOURTH WEEK
     Route: 045
     Dates: start: 20150318, end: 2015
  7. ALMAGEL (ALMAGATE) [Concomitant]
     Indication: GLOSSODYNIA
     Dosage: UNK, EVERY DAY FOR TWO WEEKS
     Route: 048
     Dates: start: 20150304, end: 20150317
  8. ALMAGEL (ALMAGATE) [Concomitant]
     Indication: PRODUCTIVE COUGH
  9. RULID [Concomitant]
     Active Substance: ROXITHROMYCIN
     Indication: BLISTER
  10. METHYLON [Concomitant]
     Active Substance: METHYLPREDNISOLONE
     Indication: BLISTER
     Dosage: UNK
     Route: 048
     Dates: start: 201504
  11. ALGENA [Concomitant]
     Indication: BLISTER
  12. NASONEX [Suspect]
     Active Substance: MOMETASONE FUROATE
     Indication: GLOSSODYNIA
     Dosage: 2-3 TIMES IN HIS NASAL WHEN HE FELT DRUG DIDN^T WELL SPRAY OUT
     Route: 045
     Dates: start: 2015, end: 2015
  13. DEXIBUPROFEN [Concomitant]
     Active Substance: DEXIBUPROFEN
     Indication: GLOSSODYNIA
     Dosage: UNK, EVERY DAY FOR TWO WEEKS
     Route: 048
     Dates: start: 20150304, end: 20150317
  14. VALTREX [Concomitant]
     Active Substance: VALACYCLOVIR HYDROCHLORIDE
     Indication: BLISTER
  15. METHYLON [Concomitant]
     Active Substance: METHYLPREDNISOLONE
     Indication: STEROID THERAPY
     Dosage: UNK, TWICE
     Route: 048
     Dates: start: 201503
  16. PREDNISOLONE. [Concomitant]
     Active Substance: PREDNISOLONE
     Indication: APHTHOUS ULCER
  17. PREDNISOLONE. [Concomitant]
     Active Substance: PREDNISOLONE
     Indication: PRODUCTIVE COUGH
  18. ALMAGEL (ALMAGATE) [Concomitant]
     Indication: APHTHOUS ULCER
  19. RULID [Concomitant]
     Active Substance: ROXITHROMYCIN
     Indication: ANTIBIOTIC THERAPY
     Dosage: UNK, TWICE
     Route: 048
     Dates: start: 201503
  20. DEXIBUPROFEN [Concomitant]
     Active Substance: DEXIBUPROFEN
     Indication: NASAL DRYNESS
  21. DEXIBUPROFEN [Concomitant]
     Active Substance: DEXIBUPROFEN
     Indication: PRODUCTIVE COUGH
  22. PREDNISOLONE. [Concomitant]
     Active Substance: PREDNISOLONE
     Indication: GLOSSODYNIA
     Dosage: UNK, EVERY DAY FOR TWO WEEKS
     Route: 048
     Dates: start: 20150304, end: 20150317
  23. PREDNISOLONE. [Concomitant]
     Active Substance: PREDNISOLONE
     Indication: NASAL DRYNESS
  24. VALTREX [Concomitant]
     Active Substance: VALACYCLOVIR HYDROCHLORIDE
     Indication: ANTIVIRAL TREATMENT
     Dosage: UNK, TWICE
     Dates: start: 201503

REACTIONS (7)
  - Immunodeficiency [Recovered/Resolved]
  - Hypogeusia [Recovered/Resolved]
  - Incorrect dose administered [Unknown]
  - Hyposmia [Recovered/Resolved]
  - Blister [Recovered/Resolved]
  - Product quality issue [Unknown]
  - Nasopharyngitis [Recovered/Resolved]

NARRATIVE: CASE EVENT DATE: 201503
